FAERS Safety Report 5085068-4 (Version None)
Quarter: 2006Q3

REPORT INFORMATION
  Report Type: 
  Country: None (occurrence: None)
  Receive Date: 20060816
  Receipt Date: 20060802
  Transmission Date: 20061208
  Serious: Yes (Other)
  Sender: FDA-Public Use
  Company Number: S06-GER-03150-01

PATIENT
  Sex: Male

DRUGS (1)
  1. ESCITALOPRAM [Suspect]

REACTIONS (1)
  - CONVULSION [None]
